FAERS Safety Report 22589659 (Version 1)
Quarter: 2023Q2

REPORT INFORMATION
  Report Type: Report from Study
  Country: CA (occurrence: CA)
  Receive Date: 20230612
  Receipt Date: 20230612
  Transmission Date: 20230722
  Serious: Yes (Other)
  Sender: FDA-Public Use
  Company Number: CA-MYLANLABS-2023M1060711

PATIENT

DRUGS (1)
  1. HULIO [Suspect]
     Active Substance: ADALIMUMAB-FKJP
     Indication: Psoriatic arthropathy
     Dosage: 40 MILLIGRAM, Q2W (40 MILLIGRAM EVERY 2 WEEKS)
     Route: 058
     Dates: start: 20230605

REACTIONS (2)
  - Psoriatic arthropathy [Unknown]
  - Feeling abnormal [Unknown]
